FAERS Safety Report 20673321 (Version 1)
Quarter: 2022Q2

REPORT INFORMATION
  Report Type: Spontaneous
  Country: US (occurrence: US)
  Receive Date: 20220405
  Receipt Date: 20220405
  Transmission Date: 20220721
  Serious: Yes (Other)
  Sender: FDA-Public Use
  Company Number: US-SA-SAC20220401000507

PATIENT
  Age: 52 Year
  Sex: Male

DRUGS (1)
  1. ZANTAC [Suspect]
     Active Substance: RANITIDINE HYDROCHLORIDE
     Dosage: UNKNOWN AT THIS TIME, DAILY INDICATION: OTHER
     Dates: start: 200201, end: 200701

REACTIONS (2)
  - Prostate cancer stage III [Unknown]
  - Disease progression [Unknown]

NARRATIVE: CASE EVENT DATE: 20091101
